FAERS Safety Report 24832208 (Version 5)
Quarter: 2025Q3

REPORT INFORMATION
  Report Type: Report from Study
  Country: CA (occurrence: CA)
  Receive Date: 20250110
  Receipt Date: 20250926
  Transmission Date: 20251021
  Serious: Yes (Other)
  Sender: NOVARTIS
  Company Number: CA-002147023-NVSC2024CA157678

PATIENT
  Age: 61 Year
  Sex: Female

DRUGS (5)
  1. KISQALI [Suspect]
     Active Substance: RIBOCICLIB SUCCINATE
     Indication: Breast cancer metastatic
     Dosage: 600 MG, QD
     Route: 048
     Dates: start: 20240802
  2. KISQALI [Suspect]
     Active Substance: RIBOCICLIB SUCCINATE
     Route: 065
  3. ZOMETA [Suspect]
     Active Substance: ZOLEDRONIC ACID
     Indication: Product used for unknown indication
     Route: 042
  4. FEMARA [Suspect]
     Active Substance: LETROZOLE
     Indication: Breast cancer metastatic
     Route: 048
     Dates: start: 20240710
  5. FEMARA [Suspect]
     Active Substance: LETROZOLE
     Route: 048

REACTIONS (29)
  - Pneumonia [Recovered/Resolved]
  - Gastrointestinal pain [Recovered/Resolved]
  - Diarrhoea [Recovered/Resolved]
  - Nausea [Recovered/Resolved]
  - Influenza [Recovered/Resolved]
  - Nasopharyngitis [Unknown]
  - Cough [Recovered/Resolved]
  - Diarrhoea [Unknown]
  - Tremor [Unknown]
  - Sleep disorder [Recovering/Resolving]
  - Spinal disorder [Recovered/Resolved]
  - Bone lesion [Recovered/Resolved]
  - Pyrexia [Recovered/Resolved]
  - Vomiting [Recovered/Resolved]
  - Chills [Recovered/Resolved]
  - Bone pain [Recovered/Resolved]
  - Oestrogen deficiency [Unknown]
  - Dry eye [Unknown]
  - Dry skin [Unknown]
  - Dry mouth [Unknown]
  - Insomnia [Unknown]
  - Fatigue [Unknown]
  - Illness [Unknown]
  - Bronchitis [Unknown]
  - Dyspnoea [Unknown]
  - Weight decreased [Unknown]
  - Decreased appetite [Recovering/Resolving]
  - Lactose intolerance [Unknown]
  - Asthenia [Recovering/Resolving]

NARRATIVE: CASE EVENT DATE: 20240801
